FAERS Safety Report 18216769 (Version 2)
Quarter: 2020Q3

REPORT INFORMATION
  Report Type: Report from Study
  Country: AT (occurrence: AT)
  Receive Date: 20200901
  Receipt Date: 20200909
  Transmission Date: 20201103
  Serious: Yes (Death, Life-Threatening, Hospitalization, Other)
  Sender: FDA-Public Use
  Company Number: AT-ADIENNEP-2020AD000441

PATIENT
  Age: 9 Year

DRUGS (4)
  1. FLUDARABINE [Suspect]
     Active Substance: FLUDARABINE PHOSPHATE
     Indication: ALLOGENIC STEM CELL TRANSPLANTATION
     Dosage: 30 MG/M2
     Dates: start: 20161129, end: 20161203
  2. THIOTEPA. [Suspect]
     Active Substance: THIOTEPA
     Indication: ALLOGENIC STEM CELL TRANSPLANTATION
     Dosage: 2 DOSAGES 5 MG/KG
     Dates: start: 20161204, end: 20161204
  3. ANTITHYMOCYTE IMMUNOGLOBULIN [Suspect]
     Active Substance: THYMOCYTE IMMUNE GLOBULIN NOS
     Indication: ALLOGENIC STEM CELL TRANSPLANTATION
     Dosage: 2.5 MG/KG
     Dates: start: 20161203, end: 20161205
  4. TREOSULFAN [Suspect]
     Active Substance: TREOSULFAN
     Indication: ALLOGENIC STEM CELL TRANSPLANTATION
     Dosage: 14 MG/M2
     Dates: start: 20161130, end: 20161202

REACTIONS (7)
  - Viral infection [Fatal]
  - Hypotension [Not Recovered/Not Resolved]
  - Mucosal inflammation [Fatal]
  - Mucosal haemorrhage [Fatal]
  - Aspiration [Not Recovered/Not Resolved]
  - Dermatitis exfoliative [Fatal]
  - Acute kidney injury [Not Recovered/Not Resolved]

NARRATIVE: CASE EVENT DATE: 20161212
